FAERS Safety Report 14903863 (Version 2)
Quarter: 2021Q3

REPORT INFORMATION
  Report Type: Spontaneous
  Country: US (occurrence: US)
  Receive Date: 20180516
  Receipt Date: 20210826
  Transmission Date: 20211014
  Serious: No
  Sender: FDA-Public Use
  Company Number: US-009507513-1805USA001407

PATIENT
  Age: 8 Year
  Sex: Male

DRUGS (3)
  1. SANDOSTATIN LAR DEPOT [Concomitant]
     Active Substance: OCTREOTIDE ACETATE
     Dosage: 10 MILLIGRAM, EVERY 4 WEEKS
     Route: 030
  2. TEMODAR [Suspect]
     Active Substance: TEMOZOLOMIDE
     Indication: NEUROENDOCRINE TUMOUR
     Dosage: 200 MILLIGRAM DAILY FOR DAYS 1?5 EACH CYCLE
     Route: 048
  3. CAPECITABINE. [Suspect]
     Active Substance: CAPECITABINE
     Indication: NEUROENDOCRINE TUMOUR
     Dosage: 750 MILLIGRAM TWICE A DAY (BID) FOR DAYS 1?5 EACH CYCLE
     Route: 048

REACTIONS (2)
  - Abdominal pain [Unknown]
  - Off label use [Unknown]
